FAERS Safety Report 11101063 (Version 1)
Quarter: 2015Q2

REPORT INFORMATION
  Report Type: Spontaneous
  Country: CN (occurrence: CN)
  Receive Date: 20150508
  Receipt Date: 20150508
  Transmission Date: 20150821
  Serious: Yes (Hospitalization)
  Sender: FDA-Public Use
  Company Number: CN-ELI_LILLY_AND_COMPANY-CN201504008851

PATIENT
  Age: 9 Month
  Sex: Male
  Weight: 9.1 kg

DRUGS (1)
  1. CECLOR [Suspect]
     Active Substance: CEFACLOR
     Indication: UPPER RESPIRATORY TRACT INFECTION
     Dosage: 90 MG, TID
     Route: 048
     Dates: start: 20140902, end: 20140904

REACTIONS (1)
  - Drug eruption [Not Recovered/Not Resolved]

NARRATIVE: CASE EVENT DATE: 20140904
